FAERS Safety Report 7926814-9 (Version None)
Quarter: 2011Q4

REPORT INFORMATION
  Report Type: 
  Country: None (occurrence: None)
  Receive Date: 20111118
  Receipt Date: 20111108
  Transmission Date: 20120403
  Serious: Yes (Other)
  Sender: FDA-Public Use
  Company Number: US-BAYER-2011-045923

PATIENT
  Age: 18 Year
  Sex: Female
  Weight: 165.53 kg

DRUGS (5)
  1. YAZ [Suspect]
     Indication: PREMENSTRUAL SYNDROME
     Dosage: UNK
     Dates: start: 20060201, end: 20090701
  2. MULTI-VITAMINS [Concomitant]
     Dosage: UNK UNK, QD
     Route: 048
  3. MOTRIN [Concomitant]
     Route: 048
  4. NEXIUM [Concomitant]
     Dosage: UNK
     Route: 048
     Dates: start: 20090501
  5. PRILOSEC [Concomitant]
     Dosage: 40 MG, QD
     Route: 048

REACTIONS (6)
  - CHOLECYSTECTOMY [None]
  - NAUSEA [None]
  - INJURY [None]
  - CHOLECYSTITIS CHRONIC [None]
  - PAIN [None]
  - DIARRHOEA [None]
